FAERS Safety Report 4414830-3 (Version None)
Quarter: 2004Q3

REPORT INFORMATION
  Report Type: 
  Country: None (occurrence: None)
  Receive Date: 20040804
  Receipt Date: 20031110
  Transmission Date: 20050211
  Serious: No
  Sender: FDA-Public Use
  Company Number: US-BRISTOL-MYERS SQUIBB COMPANY-12432340

PATIENT
  Age: 89 Year
  Sex: Male
  Weight: 91 kg

DRUGS (7)
  1. GLUCOVANCE [Suspect]
     Indication: DIABETES MELLITUS
     Dosage: (DOSE 5MG/500MG) PREVIOUSLY WAS ON 1/2 TAB TWICE A DAY
     Route: 048
  2. FUROSEMIDE [Concomitant]
  3. POTASSIUM [Concomitant]
  4. ATENOLOL [Concomitant]
  5. LISINOPRIL [Concomitant]
  6. ASPIRIN [Concomitant]
  7. FOLIC ACID [Concomitant]

REACTIONS (2)
  - BLOOD GLUCOSE FLUCTUATION [None]
  - DIARRHOEA [None]
